FAERS Safety Report 25575558 (Version 1)
Quarter: 2025Q3

REPORT INFORMATION
  Report Type: Spontaneous
  Country: US (occurrence: US)
  Receive Date: 20250718
  Receipt Date: 20250718
  Transmission Date: 20251020
  Serious: Yes (Other)
  Sender: VERONA PHARMA
  Company Number: US-VERONA PHARMA-VER-007386

PATIENT
  Age: 73 Year
  Sex: Female

DRUGS (3)
  1. OHTUVAYRE [Suspect]
     Active Substance: ENSIFENTRINE
     Indication: Chronic obstructive pulmonary disease
     Dosage: 3 MILLIGRAM, BID
     Dates: start: 202503
  2. OHTUVAYRE [Suspect]
     Active Substance: ENSIFENTRINE
     Indication: Bronchiectasis
  3. MINOCYCLINE [Suspect]
     Active Substance: MINOCYCLINE HYDROCHLORIDE
     Indication: Product used for unknown indication
     Dates: start: 20250711, end: 20250712

REACTIONS (4)
  - Pneumonia bacterial [Unknown]
  - Headache [Recovering/Resolving]
  - Oxygen saturation abnormal [Not Recovered/Not Resolved]
  - Heart rate irregular [Not Recovered/Not Resolved]

NARRATIVE: CASE EVENT DATE: 20250701
